FAERS Safety Report 25255509 (Version 1)
Quarter: 2025Q2

REPORT INFORMATION
  Report Type: Spontaneous
  Country: US (occurrence: US)
  Receive Date: 20250430
  Receipt Date: 20250430
  Transmission Date: 20250716
  Serious: Yes (Hospitalization)
  Sender: MYLAN
  Company Number: US-MYLANLABS-2025M1036087

PATIENT
  Age: 56 Year
  Sex: Male

DRUGS (28)
  1. LOPERAMIDE [Suspect]
     Active Substance: LOPERAMIDE
     Indication: Diarrhoea
  2. LOPERAMIDE [Suspect]
     Active Substance: LOPERAMIDE
     Route: 065
  3. LOPERAMIDE [Suspect]
     Active Substance: LOPERAMIDE
     Route: 065
  4. LOPERAMIDE [Suspect]
     Active Substance: LOPERAMIDE
  5. DIPHENOXYLATE [Suspect]
     Active Substance: DIPHENOXYLATE
     Indication: Diarrhoea
  6. DIPHENOXYLATE [Suspect]
     Active Substance: DIPHENOXYLATE
     Route: 065
  7. DIPHENOXYLATE [Suspect]
     Active Substance: DIPHENOXYLATE
     Route: 065
  8. DIPHENOXYLATE [Suspect]
     Active Substance: DIPHENOXYLATE
  9. FLOXURIDINE [Concomitant]
     Active Substance: FLOXURIDINE
     Indication: Rectal adenocarcinoma
  10. FLOXURIDINE [Concomitant]
     Active Substance: FLOXURIDINE
     Indication: Rectal adenocarcinoma
     Route: 065
  11. FLOXURIDINE [Concomitant]
     Active Substance: FLOXURIDINE
     Indication: K-ras gene mutation
     Route: 065
  12. FLOXURIDINE [Concomitant]
     Active Substance: FLOXURIDINE
  13. CETUXIMAB [Concomitant]
     Active Substance: CETUXIMAB
     Indication: Rectal adenocarcinoma
  14. CETUXIMAB [Concomitant]
     Active Substance: CETUXIMAB
     Indication: Rectal adenocarcinoma
     Route: 065
  15. CETUXIMAB [Concomitant]
     Active Substance: CETUXIMAB
     Indication: K-ras gene mutation
     Route: 065
  16. CETUXIMAB [Concomitant]
     Active Substance: CETUXIMAB
  17. IRINOTECAN [Concomitant]
     Active Substance: IRINOTECAN
     Indication: Rectal adenocarcinoma
  18. IRINOTECAN [Concomitant]
     Active Substance: IRINOTECAN
     Indication: Rectal adenocarcinoma
     Route: 065
  19. IRINOTECAN [Concomitant]
     Active Substance: IRINOTECAN
     Indication: K-ras gene mutation
     Route: 065
  20. IRINOTECAN [Concomitant]
     Active Substance: IRINOTECAN
  21. FLUOROURACIL [Concomitant]
     Active Substance: FLUOROURACIL
     Indication: Rectal adenocarcinoma
  22. FLUOROURACIL [Concomitant]
     Active Substance: FLUOROURACIL
     Indication: Rectal adenocarcinoma
     Route: 065
  23. FLUOROURACIL [Concomitant]
     Active Substance: FLUOROURACIL
     Indication: K-ras gene mutation
     Route: 065
  24. FLUOROURACIL [Concomitant]
     Active Substance: FLUOROURACIL
  25. LEUCOVORIN [Concomitant]
     Active Substance: LEUCOVORIN\LEUCOVORIN CALCIUM
     Indication: Rectal adenocarcinoma
  26. LEUCOVORIN [Concomitant]
     Active Substance: LEUCOVORIN\LEUCOVORIN CALCIUM
     Indication: Rectal adenocarcinoma
     Route: 065
  27. LEUCOVORIN [Concomitant]
     Active Substance: LEUCOVORIN\LEUCOVORIN CALCIUM
     Indication: K-ras gene mutation
     Route: 065
  28. LEUCOVORIN [Concomitant]
     Active Substance: LEUCOVORIN\LEUCOVORIN CALCIUM

REACTIONS (1)
  - Drug ineffective [Unknown]
